FAERS Safety Report 15529560 (Version 1)
Quarter: 2018Q4

REPORT INFORMATION
  Report Type: Spontaneous
  Country: HR (occurrence: HR)
  Receive Date: 20181020
  Receipt Date: 20181020
  Transmission Date: 20190205
  Serious: Yes (Other)
  Sender: FDA-Public Use
  Company Number: HR-ACCORD-073719

PATIENT
  Age: 70 Year
  Sex: Male
  Weight: 95 kg

DRUGS (3)
  1. OXALIPLATIN PLIVA [Suspect]
     Active Substance: OXALIPLATIN
     Indication: OROPHARYNGEAL CANCER
     Route: 041
     Dates: start: 20171214, end: 20171214
  2. FLUOROURACIL. [Suspect]
     Active Substance: FLUOROURACIL
     Indication: OROPHARYNGEAL CANCER
     Route: 042
     Dates: start: 20171214, end: 20171215
  3. FOLINIC ACID [Suspect]
     Active Substance: LEUCOVORIN
     Indication: OROPHARYNGEAL CANCER
     Route: 042
     Dates: start: 20171214, end: 20171215

REACTIONS (3)
  - Paraesthesia [Not Recovered/Not Resolved]
  - Peripheral sensory neuropathy [Not Recovered/Not Resolved]
  - Dysaesthesia [Not Recovered/Not Resolved]

NARRATIVE: CASE EVENT DATE: 20171221
